FAERS Safety Report 13134572 (Version 2)
Quarter: 2017Q1

REPORT INFORMATION
  Report Type: Spontaneous
  Country: JP (occurrence: JP)
  Receive Date: 20170120
  Receipt Date: 20170209
  Transmission Date: 20170428
  Serious: Yes (Hospitalization, Other)
  Sender: FDA-Public Use
  Company Number: JP-PFIZER INC-2017020188

PATIENT
  Age: 74 Year
  Sex: Female
  Weight: 37 kg

DRUGS (5)
  1. NASEA [Suspect]
     Active Substance: RAMOSETRON HYDROCHLORIDE
     Indication: DECREASED APPETITE
     Dosage: 0.1 MG, 1X/DAY
     Route: 048
     Dates: start: 20170110, end: 20170115
  2. TAMIFLU [Suspect]
     Active Substance: OSELTAMIVIR PHOSPHATE
     Indication: ANTIVIRAL PROPHYLAXIS
     Dosage: 75 MG, 1X/DAY
     Route: 048
     Dates: start: 20170118, end: 20170119
  3. XALKORI [Suspect]
     Active Substance: CRIZOTINIB
     Indication: NON-SMALL CELL LUNG CANCER
     Dosage: 250 MG, 2X/DAY
     Route: 048
     Dates: start: 20170111, end: 20170117
  4. NASEA [Suspect]
     Active Substance: RAMOSETRON HYDROCHLORIDE
     Indication: NAUSEA
  5. ONETRAM [Suspect]
     Active Substance: TRAMADOL HYDROCHLORIDE
     Indication: PAIN
     Dosage: 100 MG, 1X/DAY
     Route: 048
     Dates: start: 20170114, end: 20170119

REACTIONS (6)
  - Pleural effusion [Recovering/Resolving]
  - Renal impairment [Recovering/Resolving]
  - Inappropriate antidiuretic hormone secretion [Unknown]
  - Pulmonary hypertension [Recovering/Resolving]
  - Delirium [Recovered/Resolved]
  - Hypoxia [Recovering/Resolving]

NARRATIVE: CASE EVENT DATE: 20170116
